FAERS Safety Report 10758916 (Version 1)
Quarter: 2015Q1

REPORT INFORMATION
  Report Type: Spontaneous
  Country: US (occurrence: US)
  Receive Date: 20150203
  Receipt Date: 20150203
  Transmission Date: 20150721
  Serious: No
  Sender: FDA-Public Use
  Company Number: US-PFIZER INC-2015041325

PATIENT
  Sex: Female

DRUGS (4)
  1. ASPIRIN. [Suspect]
     Active Substance: ASPIRIN
  2. CELEBREX [Suspect]
     Active Substance: CELECOXIB
  3. MOTRIN [Suspect]
     Active Substance: IBUPROFEN
  4. IBUPROFEN. [Suspect]
     Active Substance: IBUPROFEN

REACTIONS (1)
  - Drug hypersensitivity [Not Recovered/Not Resolved]
